FAERS Safety Report 11992110 (Version 1)
Quarter: 2016Q1

REPORT INFORMATION
  Report Type: Spontaneous
  Country: US (occurrence: US)
  Receive Date: 20160203
  Receipt Date: 20160203
  Transmission Date: 20160526
  Serious: No
  Sender: FDA-Public Use
  Company Number: US-JNJFOC-20151211303

PATIENT
  Age: 79 Year
  Sex: Female
  Weight: 55.79 kg

DRUGS (1)
  1. TYLENOL EXTRA STRENGTH [Suspect]
     Active Substance: ACETAMINOPHEN
     Indication: PAIN
     Route: 048

REACTIONS (3)
  - Product expiration date issue [Unknown]
  - Abdominal discomfort [Unknown]
  - Product lot number issue [Unknown]
